FAERS Safety Report 13303440 (Version 1)
Quarter: 2017Q1

REPORT INFORMATION
  Report Type: Report from Study
  Country: NO (occurrence: NO)
  Receive Date: 20170307
  Receipt Date: 20170307
  Transmission Date: 20170428
  Serious: Yes (Other)
  Sender: FDA-Public Use
  Company Number: NO-BAYER-2017-037879

PATIENT
  Sex: Female

DRUGS (1)
  1. JAYDESS [Suspect]
     Active Substance: LEVONORGESTREL
     Indication: CONTRACEPTION
     Dosage: 14 MCG/24HR, CONT
     Route: 015
     Dates: end: 20170221

REACTIONS (6)
  - Dyspareunia [None]
  - Device dislocation [None]
  - Pelvic fluid collection [None]
  - Ovarian germ cell teratoma benign [None]
  - Device use issue [None]
  - Vaginal discharge [None]
